FAERS Safety Report 14589907 (Version 1)
Quarter: 2018Q1

REPORT INFORMATION
  Report Type: Spontaneous
  Country: US (occurrence: US)
  Receive Date: 20180302
  Receipt Date: 20180302
  Transmission Date: 20180509
  Serious: No
  Sender: FDA-Public Use
  Company Number: US-009507513-1803USA000222

PATIENT
  Age: 27 Year
  Sex: Female
  Weight: 56.69 kg

DRUGS (1)
  1. NEXPLANON [Suspect]
     Active Substance: ETONOGESTREL
     Indication: CONTRACEPTION
     Dosage: DOSE UNKNOWN: FREQUENCY: EVERY 3 YEARS
     Route: 059
     Dates: start: 20161121

REACTIONS (2)
  - Vaginal discharge [Unknown]
  - Menorrhagia [Unknown]

NARRATIVE: CASE EVENT DATE: 201712
